FAERS Safety Report 25924503 (Version 1)
Quarter: 2025Q4

REPORT INFORMATION
  Report Type: Spontaneous
  Country: BR (occurrence: BR)
  Receive Date: 20251015
  Receipt Date: 20251015
  Transmission Date: 20260117
  Serious: Yes (Other)
  Sender: BAYER HEALTHCARE PHARMACEUTICALS INC.
  Company Number: BR-BAYER-2025A134816

PATIENT
  Age: 45 Year
  Sex: Male

DRUGS (1)
  1. ULTRAVIST [Suspect]
     Active Substance: IOPROMIDE
     Indication: Computerised tomogram
     Dosage: 85 ML, ONCE
     Route: 042
     Dates: start: 20251008, end: 20251008

REACTIONS (2)
  - Dermatitis bullous [Recovered/Resolved with Sequelae]
  - Tracheal disorder [Recovered/Resolved with Sequelae]

NARRATIVE: CASE EVENT DATE: 20251008
